FAERS Safety Report 26185423 (Version 1)
Quarter: 2025Q4

REPORT INFORMATION
  Report Type: Spontaneous
  Country: EU (occurrence: EU)
  Receive Date: 20251222
  Receipt Date: 20251222
  Transmission Date: 20260118
  Serious: Yes (Life-Threatening, Hospitalization)
  Sender: MACLEODS
  Company Number: EU-MLMSERVICE-20251205-PI741176-00266-1

PATIENT

DRUGS (1)
  1. POTASSIUM CHLORIDE [Suspect]
     Active Substance: POTASSIUM CHLORIDE
     Indication: Product used for unknown indication
     Dosage: 50 POTASSIUM CHLORIDE TABLETS IN A SUICIDE ATTEMPT 1.5 H EARLIER
     Route: 065

REACTIONS (5)
  - Bezoar [Recovered/Resolved]
  - Poisoning deliberate [Recovering/Resolving]
  - Suicide attempt [Recovering/Resolving]
  - Intentional overdose [Recovering/Resolving]
  - Hyperkalaemia [Recovering/Resolving]
